FAERS Safety Report 8392097-1 (Version None)
Quarter: 2012Q2

REPORT INFORMATION
  Report Type: 
  Country: None (occurrence: None)
  Receive Date: 20120529
  Receipt Date: 20120524
  Transmission Date: 20120825
  Serious: No
  Sender: FDA-Public Use
  Company Number: US-BAYER-2012-052485

PATIENT
  Age: 56 Year
  Sex: Female

DRUGS (3)
  1. AVELOX [Suspect]
     Dosage: 400 MG, UNK
  2. RESCUE INHALER [Concomitant]
  3. STEROID INHALER [Concomitant]

REACTIONS (5)
  - ARTHRALGIA [None]
  - BURNING SENSATION [None]
  - MUSCULAR WEAKNESS [None]
  - PAIN IN EXTREMITY [None]
  - LIMB DISCOMFORT [None]
